APPROVED DRUG PRODUCT: DEXAMETHASONE
Active Ingredient: DEXAMETHASONE
Strength: 1.5MG
Dosage Form/Route: TABLET;ORAL
Application: A217695 | Product #004 | TE Code: AB
Applicant: APOTEX INC
Approved: Aug 23, 2023 | RLD: No | RS: No | Type: RX